FAERS Safety Report 14397463 (Version 1)
Quarter: 2018Q1

REPORT INFORMATION
  Report Type: Other
  Country: US (occurrence: US)
  Receive Date: 20180116
  Receipt Date: 20180116
  Transmission Date: 20180509
  Serious: Yes (Death)
  Sender: FDA-Public Use
  Company Number: US-CIPHER-2018-US-000011

PATIENT
  Age: 75 Year
  Sex: Female

DRUGS (1)
  1. CONZIP [Suspect]
     Active Substance: TRAMADOL HYDROCHLORIDE
     Dates: end: 2016

REACTIONS (1)
  - Toxicity to various agents [Fatal]

NARRATIVE: CASE EVENT DATE: 2016
